FAERS Safety Report 9399902 (Version 2)
Quarter: 2013Q4

REPORT INFORMATION
  Report Type: Spontaneous
  Country: FR (occurrence: FR)
  Receive Date: 20130715
  Receipt Date: 20131023
  Transmission Date: 20140711
  Serious: Yes (Hospitalization)
  Sender: FDA-Public Use
  Company Number: FR-EISAI INC-E7389-04012-SPO-FR

PATIENT
  Age: 79 Year
  Sex: Female
  Weight: 55 kg

DRUGS (1)
  1. HALAVEN [Suspect]
     Indication: BREAST CANCER
     Dosage: 1.23 MG/M2 (1.98 MG)
     Route: 041
     Dates: start: 20130628, end: 20130628

REACTIONS (3)
  - Ischaemic stroke [Recovering/Resolving]
  - Aphasia [Recovering/Resolving]
  - Dysphagia [Recovering/Resolving]
